FAERS Safety Report 8060040 (Version 4)
Quarter: 2013Q2

REPORT INFORMATION
  Report Type: Spontaneous
  Country: US (occurrence: US)
  Receive Date: 20110729
  Receipt Date: 20130618
  Transmission Date: 20140414
  Serious: Yes (Hospitalization, Other)
  Sender: FDA-Public Use
  Company Number: US-BAYER-2011-065752

PATIENT
  Age: 22 Year
  Sex: Female
  Weight: 57 kg

DRUGS (13)
  1. YAZ [Suspect]
     Indication: ORAL CONTRACEPTION
     Dosage: 3MG/0.02MG
     Route: 048
     Dates: start: 200705, end: 200906
  2. OCELLA [Suspect]
     Indication: ORAL CONTRACEPTION
     Dosage: UNK
     Dates: start: 200812, end: 200812
  3. ASCORBIC ACID [Concomitant]
  4. ADVIL [Concomitant]
  5. IBUPROFEN [Concomitant]
  6. NAPROXEN SODIUM + PSEUDOEPHEDRINE [Concomitant]
  7. POTASSIUM [Concomitant]
  8. HYDROCODONE [Concomitant]
  9. CARISOPRODOL [Concomitant]
  10. ZOLPIDEM [Concomitant]
  11. DIAZEPAM [Concomitant]
  12. LEVAQUIN [Concomitant]
  13. BACTRIM [Concomitant]

REACTIONS (16)
  - Pulmonary embolism [None]
  - Cardiac disorder [None]
  - Weight increased [None]
  - Alopecia [None]
  - Injury [None]
  - Pain [None]
  - Fear [Unknown]
  - Dyspnoea [None]
  - Kidney infection [None]
  - Cystitis [None]
  - Pyelonephritis [None]
  - Transfusion [None]
  - Malaise [None]
  - Tachypnoea [None]
  - Nephrolithiasis [None]
  - Blood disorder [None]
